FAERS Safety Report 7298838-9 (Version None)
Quarter: 2011Q1

REPORT INFORMATION
  Report Type: 
  Country: None (occurrence: None)
  Receive Date: 20110217
  Receipt Date: 20110204
  Transmission Date: 20110831
  Serious: Yes (Hospitalization, Other)
  Sender: FDA-Public Use
  Company Number: JP-ROCHE-759348

PATIENT
  Sex: Male
  Weight: 58 kg

DRUGS (7)
  1. 5-FU [Concomitant]
     Route: 041
  2. LEVOFOLINATE [Concomitant]
     Route: 041
  3. CAMPTOSAR [Concomitant]
     Route: 041
  4. DEXART [Suspect]
     Indication: PROPHYLAXIS
     Route: 065
  5. AVASTIN [Suspect]
     Indication: RECTAL CANCER METASTATIC
     Route: 041
     Dates: start: 20100325, end: 20110104
  6. GRANISETRON HCL [Concomitant]
     Route: 065
  7. ELPLAT [Concomitant]
     Route: 041

REACTIONS (2)
  - INTESTINAL OBSTRUCTION [None]
  - GASTROINTESTINAL PERFORATION [None]
